FAERS Safety Report 21570757 (Version 1)
Quarter: 2022Q4

REPORT INFORMATION
  Report Type: Spontaneous
  Country: CN (occurrence: None)
  Receive Date: 20221109
  Receipt Date: 20221109
  Transmission Date: 20230113
  Serious: Yes (Other)
  Sender: FDA-Public Use
  Company Number: CN-ROCHE-3214194

PATIENT
  Age: 35 Year
  Sex: Female
  Weight: 44 kg

DRUGS (13)
  1. AVASTIN [Suspect]
     Active Substance: BEVACIZUMAB
     Indication: Colon cancer
     Dosage: FOR 10 CYCLES, BEVACIZUMAB WAS SUSPENDED DUE TO LIVER PUNCTURE IN CYCLES 9-10
     Route: 065
     Dates: start: 202106
  2. XELODA [Suspect]
     Active Substance: CAPECITABINE
     Indication: Colon cancer
     Dosage: FOR 3 CYCLES
     Route: 048
     Dates: start: 2020, end: 202011
  3. XELODA [Suspect]
     Active Substance: CAPECITABINE
     Route: 048
     Dates: start: 2021
  4. OXALIPLATIN [Concomitant]
     Active Substance: OXALIPLATIN
     Indication: Colon cancer
     Dosage: FOR 3 CYCLES
     Dates: start: 2020, end: 202011
  5. OXALIPLATIN [Concomitant]
     Active Substance: OXALIPLATIN
     Dosage: FOLFOX
  6. IRINOTECAN [Concomitant]
     Active Substance: IRINOTECAN
     Indication: Colon cancer
     Dosage: FOR 10 CYCLES
     Dates: start: 202106, end: 20211222
  7. LEUCOVORIN CALCIUM [Concomitant]
     Active Substance: LEUCOVORIN CALCIUM
     Indication: Colon cancer
     Dosage: FOR 10 CYCLES
     Dates: start: 202106, end: 20211222
  8. LEUCOVORIN CALCIUM [Concomitant]
     Active Substance: LEUCOVORIN CALCIUM
     Dosage: FOLFOX
  9. FLUOROURACIL [Concomitant]
     Active Substance: FLUOROURACIL
     Indication: Colon cancer
     Dosage: FOR 10 CYCLES
     Dates: start: 202106, end: 20211222
  10. FLUOROURACIL [Concomitant]
     Active Substance: FLUOROURACIL
     Dosage: FOLFOX
  11. NIVOLUMAB [Concomitant]
     Active Substance: NIVOLUMAB
     Indication: Colon cancer
     Dosage: FOR 5 CYCLES
     Dates: start: 20220128, end: 202205
  12. FRUQUINTINIB [Concomitant]
     Active Substance: FRUQUINTINIB
     Indication: Colon cancer
     Dosage: FOR 5 CYCLES
     Dates: start: 20220128, end: 202205
  13. TIPIRACIL HYDROCHLORIDE\TRIFLURIDINE [Concomitant]
     Active Substance: TIPIRACIL HYDROCHLORIDE\TRIFLURIDINE
     Indication: Colon cancer
     Dosage: FOR 5 CYCLES, D1-5, 2 WEEKS AS A CYCLE
     Dates: start: 20220819, end: 20221025

REACTIONS (2)
  - Myelosuppression [Unknown]
  - Granulocyte count decreased [Recovering/Resolving]

NARRATIVE: CASE EVENT DATE: 20220101
